FAERS Safety Report 6330384-9 (Version None)
Quarter: 2009Q3

REPORT INFORMATION
  Report Type: 
  Country: None (occurrence: None)
  Receive Date: 20090826
  Receipt Date: 20090826
  Transmission Date: 20100115
  Serious: Yes (Hospitalization)
  Sender: FDA-Public Use
  Company Number: None

PATIENT
  Sex: Male
  Weight: 82.5547 kg

DRUGS (9)
  1. PREZISTA [Suspect]
     Indication: HIV INFECTION
     Dosage: 800 MG, DAILY, ORAL
     Route: 048
     Dates: start: 20090225
  2. RITONAVIR [Suspect]
     Indication: HIV INFECTION
     Dosage: 100 MG, DAILY, ORAL
     Route: 048
     Dates: start: 20090225
  3. CELEXA [Concomitant]
  4. TOMAZOPAM [Concomitant]
  5. TOPROL-XL [Concomitant]
  6. TRICOR [Concomitant]
  7. XANAX [Concomitant]
  8. DEPOTESTOATERONE [Concomitant]
  9. VITAMIN B-12 [Concomitant]

REACTIONS (6)
  - BACK PAIN [None]
  - CHILLS [None]
  - DYSPNOEA [None]
  - DYSURIA [None]
  - PYREXIA [None]
  - WHITE BLOOD CELL COUNT INCREASED [None]
